FAERS Safety Report 8855875 (Version 1)
Quarter: 2012Q4

REPORT INFORMATION
  Report Type: 
  Country: US (occurrence: US)
  Receive Date: 20121023
  Receipt Date: 20121023
  Transmission Date: 20130627
  Serious: No
  Sender: FDA-Public Use
  Company Number: US-AMGEN-USASP2012058658

PATIENT
  Age: 47 Year
  Sex: Female
  Weight: 58.96 kg

DRUGS (7)
  1. ENBREL [Suspect]
     Indication: PRODUCT USED FOR UNKNOWN INDICATION
     Dosage: 50 mg, qwk
     Route: 058
  2. SULFASALAZIN [Concomitant]
     Dosage: 500 mg, UNK
  3. MOBIC [Concomitant]
     Dosage: 15 mg, UNK
  4. MULTIVITAMINS, PLAIN [Concomitant]
     Dosage: UNK
  5. ALBUTEROL                          /00139501/ [Concomitant]
     Dosage: 90 mug, UNK
  6. VITAMIN C                          /00008001/ [Concomitant]
     Dosage: 1000 mg, UNK
  7. FISH OIL [Concomitant]
     Dosage: UNK

REACTIONS (4)
  - Pain [Unknown]
  - Lung infiltration [Unknown]
  - Chronic sinusitis [Unknown]
  - Onychomycosis [Unknown]
